FAERS Safety Report 23920005 (Version 6)
Quarter: 2024Q4

REPORT INFORMATION
  Report Type: Spontaneous
  Country: US (occurrence: US)
  Receive Date: 20240530
  Receipt Date: 20241011
  Transmission Date: 20250115
  Serious: No
  Sender: PFIZER
  Company Number: US-PFIZER INC-202400175095

PATIENT
  Age: 10 Year
  Sex: Female

DRUGS (1)
  1. GENOTROPIN [Suspect]
     Active Substance: SOMATROPIN
     Indication: Blood growth hormone
     Dosage: DOSE IS 1 MILLIGRAMS, ONCE A DAY, INJECTED EVERY NIGHT

REACTIONS (2)
  - Drug dose omission by device [Unknown]
  - Expired device used [Unknown]
